FAERS Safety Report 5987620-8 (Version None)
Quarter: 2008Q4

REPORT INFORMATION
  Report Type: 
  Country: None (occurrence: None)
  Receive Date: 20081209
  Receipt Date: 20081118
  Transmission Date: 20090506
  Serious: No
  Sender: FDA-Public Use
  Company Number: US-B.I. PHARMACEUTICALS,INC./RIDGEFIELD-2008-BP-17428BP

PATIENT
  Age: 75 Year
  Sex: Male

DRUGS (3)
  1. FLOMAX [Suspect]
     Indication: URINARY INCONTINENCE
  2. ENABLEX [Concomitant]
     Indication: URINARY INCONTINENCE
  3. DITROPAN [Concomitant]
     Indication: URINARY INCONTINENCE

REACTIONS (1)
  - DRUG INEFFECTIVE [None]
